FAERS Safety Report 13236967 (Version 1)
Quarter: 2017Q1

REPORT INFORMATION
  Report Type: Report from Study
  Country: US (occurrence: US)
  Receive Date: 20170215
  Receipt Date: 20170215
  Transmission Date: 20170428
  Serious: Yes (Hospitalization, Other)
  Sender: FDA-Public Use
  Company Number: US-CELGENEUS-163-20785-12012714

PATIENT
  Age: 61 Year
  Sex: Male
  Weight: 98.06 kg

DRUGS (2)
  1. THALOMID [Suspect]
     Active Substance: THALIDOMIDE
     Indication: PLASMA CELL MYELOMA
     Dosage: 100 MILLIGRAM
     Route: 048
     Dates: start: 20111104, end: 20111123
  2. DECADRON [Suspect]
     Active Substance: DEXAMETHASONE
     Indication: PRODUCT USED FOR UNKNOWN INDICATION
     Dosage: 40 MILLIGRAM
     Route: 048
     Dates: start: 20111104, end: 20111123

REACTIONS (6)
  - Anaemia [Recovered/Resolved]
  - Abdominal pain [Recovered/Resolved]
  - Dyspnoea [Recovered/Resolved]
  - Platelet count decreased [Recovered/Resolved]
  - Asthenia [Recovered/Resolved]
  - Pain [Recovered/Resolved]

NARRATIVE: CASE EVENT DATE: 20111117
